FAERS Safety Report 6517396-7 (Version None)
Quarter: 2009Q4

REPORT INFORMATION
  Report Type: 
  Country: None (occurrence: None)
  Receive Date: 20091218
  Receipt Date: 20091204
  Transmission Date: 20100525
  Serious: Yes (Other)
  Sender: FDA-Public Use
  Company Number: US-2009-2599

PATIENT
  Sex: Male

DRUGS (2)
  1. NAVELBINE [Suspect]
     Indication: LUNG NEOPLASM MALIGNANT
  2. CISPLATIN [Suspect]
     Indication: LUNG NEOPLASM MALIGNANT

REACTIONS (3)
  - ABDOMINAL PAIN UPPER [None]
  - HEPATIC FIBROSIS [None]
  - HEPATIC STEATOSIS [None]
